FAERS Safety Report 26118122 (Version 1)
Quarter: 2025Q4

REPORT INFORMATION
  Report Type: Spontaneous
  Country: LK (occurrence: LK)
  Receive Date: 20251203
  Receipt Date: 20251203
  Transmission Date: 20260117
  Serious: Yes (Life-Threatening, Hospitalization, Other)
  Sender: ALEXION PHARMACEUTICALS
  Company Number: LK-ASTRAZENECA-202511GLO028010LK

PATIENT
  Age: 45 Year
  Sex: Female

DRUGS (1)
  1. BUDESONIDE\FORMOTEROL [Suspect]
     Active Substance: BUDESONIDE\FORMOTEROL
     Dosage: 18 DPI CAPSULES OF FORMOTEROL/BUDESONIDE (12 ?G/400 ?G)
     Route: 065

REACTIONS (7)
  - Suicide attempt [Unknown]
  - Tachycardia [Recovered/Resolved]
  - Electrocardiogram QT prolonged [Recovered/Resolved]
  - Lactic acidosis [Recovering/Resolving]
  - Hyperglycaemia [Recovering/Resolving]
  - Hypokalaemia [Recovering/Resolving]
  - Intentional product misuse [Unknown]
